FAERS Safety Report 7481050-8 (Version None)
Quarter: 2011Q2

REPORT INFORMATION
  Report Type: 
  Country: None (occurrence: None)
  Receive Date: 20110512
  Receipt Date: 20110512
  Transmission Date: 20111010
  Serious: Yes (Other)
  Sender: FDA-Public Use
  Company Number: None

PATIENT
  Sex: Female
  Weight: 68.0396 kg

DRUGS (1)
  1. GEODON [Suspect]
     Indication: PSYCHOSOMATIC DISEASE
     Dosage: 10MG (MULTIPLE TIMES) 2 X PER DAY BUTTOCK INJECTIONS
     Dates: start: 20110301, end: 20110401

REACTIONS (5)
  - BLOOD PRESSURE ORTHOSTATIC [None]
  - ASTHENIA [None]
  - THINKING ABNORMAL [None]
  - NAUSEA [None]
  - DIZZINESS [None]
